FAERS Safety Report 7033384-9 (Version None)
Quarter: 2010Q4

REPORT INFORMATION
  Report Type: 
  Country: None (occurrence: None)
  Receive Date: 20101007
  Receipt Date: 20100927
  Transmission Date: 20110411
  Serious: Yes (Other)
  Sender: FDA-Public Use
  Company Number: US-MPIJNJ-2010-04986

PATIENT
  Sex: Male

DRUGS (12)
  1. VELCADE [Suspect]
     Indication: MULTIPLE MYELOMA
     Dosage: 1.3 UNK, UNK
     Dates: start: 20080324, end: 20080630
  2. VELCADE [Suspect]
     Dosage: 1.0 MG/M2, UNK
     Dates: start: 20080929
  3. VELCADE [Suspect]
     Dosage: 1.0 MG/M2, UNK
     Dates: start: 20090310
  4. VELCADE [Suspect]
     Dosage: 1.0 MG/M2, UNK
     Dates: start: 20100619
  5. REVLIMID [Suspect]
     Indication: MULTIPLE MYELOMA
     Dosage: 25 MG, UNK
     Route: 048
     Dates: start: 20070413, end: 20070418
  6. REVLIMID [Suspect]
     Dosage: 10 MG, UNK
     Route: 048
     Dates: start: 20080324, end: 20080630
  7. REVLIMID [Suspect]
     Dosage: 5 MG, UNK
     Route: 048
     Dates: start: 20090617
  8. REVLIMID [Suspect]
     Dosage: 10 MG, UNK
     Route: 048
     Dates: start: 20090701, end: 20100701
  9. REVLIMID [Suspect]
     Dosage: 20 MG, UNK
     Route: 048
     Dates: start: 20100701
  10. REVLIMID [Suspect]
     Dosage: 10 MG, UNK
     Route: 048
     Dates: start: 20100801
  11. DECADRON [Concomitant]
     Indication: PRODUCT USED FOR UNKNOWN INDICATION
     Dosage: 20 MG, 1/WEEK
     Dates: start: 20090310
  12. DECADRON [Concomitant]
     Dosage: 20 MG, 1/WEEK
     Dates: start: 20100116

REACTIONS (2)
  - BONE MARROW FAILURE [None]
  - DISEASE PROGRESSION [None]
